FAERS Safety Report 8450193-4 (Version None)
Quarter: 2012Q2

REPORT INFORMATION
  Report Type: 
  Country: None (occurrence: None)
  Receive Date: 20120620
  Receipt Date: 20120611
  Transmission Date: 20120825
  Serious: Yes (Hospitalization)
  Sender: FDA-Public Use
  Company Number: US-BAYER-2012-018914

PATIENT
  Age: 38 Year
  Sex: Female
  Weight: 77.098 kg

DRUGS (8)
  1. DROSPIRENONE AND ETHINYL ESTRADIOL [Suspect]
     Indication: CONTRACEPTION
     Dosage: UNK
     Dates: start: 20080801, end: 20100301
  2. YASMIN [Suspect]
  3. VICODIN [Concomitant]
     Indication: PAIN
     Dosage: 5-500 MG, Q4HR
     Route: 048
  4. DROSPIRENONE AND ETHINYL ESTRADIOL [Suspect]
  5. YASMIN [Suspect]
     Indication: PREMENSTRUAL SYNDROME
  6. VALTREX [Concomitant]
     Indication: ORAL HERPES
     Dosage: 1 DAILY
     Dates: start: 20090105
  7. YASMIN [Suspect]
     Indication: CONTRACEPTION
     Dosage: UNK
     Dates: start: 20060301, end: 20080701
  8. DROSPIRENONE AND ETHINYL ESTRADIOL [Suspect]
     Indication: PREMENSTRUAL SYNDROME

REACTIONS (3)
  - CHOLECYSTECTOMY [None]
  - PAIN [None]
  - CHOLECYSTITIS ACUTE [None]
